FAERS Safety Report 5635124-4 (Version None)
Quarter: 2008Q1

REPORT INFORMATION
  Report Type: 
  Country: None (occurrence: None)
  Receive Date: 20080222
  Receipt Date: 20080213
  Transmission Date: 20080703
  Serious: Yes (Hospitalization)
  Sender: FDA-Public Use
  Company Number: JP-PFIZER INC-2008009162

PATIENT
  Sex: Male
  Weight: 66.5 kg

DRUGS (1)
  1. AMLODIPINE [Suspect]
     Indication: HYPERTENSION
     Route: 048
     Dates: start: 20070521, end: 20080126

REACTIONS (2)
  - ATRIOVENTRICULAR BLOCK [None]
  - LOSS OF CONSCIOUSNESS [None]
